FAERS Safety Report 8847220 (Version 1)
Quarter: 2012Q4

REPORT INFORMATION
  Report Type: 
  Country: BR (occurrence: BR)
  Receive Date: 20121018
  Receipt Date: 20121018
  Transmission Date: 20130627
  Serious: Yes (Other)
  Sender: FDA-Public Use
  Company Number: PHHY2012BR091875

PATIENT
  Sex: Female

DRUGS (4)
  1. GENTEAL GEL [Suspect]
  2. GENTEAL GEL [Suspect]
  3. SYSTANE BALANCE [Suspect]
  4. POLYETHYLENE GLYCOL [Suspect]

REACTIONS (2)
  - Keratoconus [Unknown]
  - Eye inflammation [Unknown]
